FAERS Safety Report 9909076 (Version 1)
Quarter: 2014Q1

REPORT INFORMATION
  Report Type: Spontaneous
  Country: GB (occurrence: GB)
  Receive Date: 20140219
  Receipt Date: 20140219
  Transmission Date: 20141002
  Serious: Yes (Death)
  Sender: FDA-Public Use
  Company Number: GB-TEVA-463238ISR

PATIENT
  Age: 19 Year
  Sex: Male

DRUGS (1)
  1. DOXYCYCLINE [Suspect]
     Indication: DERMATITIS
     Dosage: 100 MILLIGRAM DAILY;
     Route: 065

REACTIONS (2)
  - Suicidal ideation [Fatal]
  - Completed suicide [Fatal]
